FAERS Safety Report 4361048-9 (Version None)
Quarter: 2004Q2

REPORT INFORMATION
  Report Type: 
  Country: None (occurrence: None)
  Receive Date: 20040519
  Receipt Date: 20040519
  Transmission Date: 20050107
  Serious: Yes (Hospitalization)
  Sender: FDA-Public Use
  Company Number: None

PATIENT
  Age: 24 Year
  Sex: Female
  Weight: 99.7913 kg

DRUGS (4)
  1. SEROQUEL [Suspect]
     Indication: ANXIETY
     Dosage: 50 MG / NIGHT / MOUTH
     Route: 048
     Dates: start: 20040402, end: 20040415
  2. SEROQUEL [Suspect]
     Indication: DEPRESSION
     Dosage: 50 MG / NIGHT / MOUTH
     Route: 048
     Dates: start: 20040402, end: 20040415
  3. ZOLOFT [Concomitant]
  4. NASONEX [Concomitant]

REACTIONS (5)
  - ANOREXIA [None]
  - CRYING [None]
  - DIZZINESS [None]
  - FEELING ABNORMAL [None]
  - VAGINAL HAEMORRHAGE [None]
